FAERS Safety Report 5634205-9 (Version None)
Quarter: 2008Q1

REPORT INFORMATION
  Report Type: 
  Country: None (occurrence: None)
  Receive Date: 20080219
  Receipt Date: 20080204
  Transmission Date: 20080703
  Serious: Yes (Hospitalization)
  Sender: FDA-Public Use
  Company Number: ADE2008-0129

PATIENT
  Age: 67 Year
  Sex: Female
  Weight: 65 kg

DRUGS (1)
  1. AMOXICILLIN [Suspect]
     Indication: PNEUMONIA
     Dosage: 1 GM - PO
     Route: 048
     Dates: start: 20070831, end: 20070905

REACTIONS (2)
  - HEPATIC ENCEPHALOPATHY [None]
  - LIVER FUNCTION TEST ABNORMAL [None]
